FAERS Safety Report 7641115-4 (Version None)
Quarter: 2011Q3

REPORT INFORMATION
  Report Type: 
  Country: None (occurrence: None)
  Receive Date: 20110728
  Receipt Date: 20110722
  Transmission Date: 20111222
  Serious: Yes (Hospitalization, Other)
  Sender: FDA-Public Use
  Company Number: US-SANOFI-AVENTIS-2011SA040073

PATIENT
  Age: 85 Year
  Sex: Male
  Weight: 83.91 kg

DRUGS (10)
  1. LUPRON [Concomitant]
     Dosage: EVERY THREE MONDAY
     Dates: start: 20100222, end: 20100222
  2. HYPNOTICS AND SEDATIVES [Concomitant]
  3. LASIX [Concomitant]
     Route: 048
     Dates: start: 20101117
  4. ALL OTHER THERAPEUTIC PRODUCTS [Suspect]
     Route: 065
     Dates: start: 20110615
  5. LUPRON [Concomitant]
     Indication: PROSTATE CANCER
     Dosage: EVERY THREE MONDAY
     Dates: start: 20110518, end: 20110518
  6. OTHER HYPNOTICS AND SEDATIVES [Concomitant]
  7. NILANDRON [Suspect]
     Route: 048
     Dates: start: 20100915, end: 20110615
  8. NILANDRON [Suspect]
     Indication: PROSTATE CANCER
     Route: 048
     Dates: start: 20100915, end: 20110615
  9. VITAMIN D [Concomitant]
  10. MULTI-VITAMINS [Concomitant]

REACTIONS (7)
  - HALLUCINATION [None]
  - LABORATORY TEST ABNORMAL [None]
  - SYNCOPE [None]
  - MUSCLE ATROPHY [None]
  - PAIN IN EXTREMITY [None]
  - RHABDOMYOLYSIS [None]
  - FALL [None]
